FAERS Safety Report 25661098 (Version 2)
Quarter: 2025Q3

REPORT INFORMATION
  Report Type: Spontaneous
  Country: US (occurrence: US)
  Receive Date: 20250808
  Receipt Date: 20250814
  Transmission Date: 20251021
  Serious: No
  Sender: BIOMARIN
  Company Number: US-SA-2025SA227242

PATIENT
  Age: 8 Year
  Sex: Male
  Weight: 37 kg

DRUGS (2)
  1. LARONIDASE [Suspect]
     Active Substance: LARONIDASE
     Indication: Mucopolysaccharidosis I
     Dosage: UNK UNK, QW
     Dates: start: 201705
  2. LARONIDASE [Suspect]
     Active Substance: LARONIDASE
     Dosage: 23.2 MG (0.6 MG/KG), QW
     Dates: start: 2025

REACTIONS (1)
  - Off label use [Unknown]

NARRATIVE: CASE EVENT DATE: 20250101
